FAERS Safety Report 9694558 (Version 2)
Quarter: 2013Q4

REPORT INFORMATION
  Report Type: Report from Study
  Country: DE (occurrence: DE)
  Receive Date: 20131118
  Receipt Date: 20131118
  Transmission Date: 20140711
  Serious: Yes (Other)
  Sender: FDA-Public Use
  Company Number: DE-ABBVIE-13P-062-1051996-00

PATIENT
  Age: 71 Year
  Sex: Male

DRUGS (11)
  1. SIXANTONE [Suspect]
     Indication: PROSTATE CANCER
     Route: 058
     Dates: start: 20120315
  2. TRENANTONE [Suspect]
     Indication: PROSTATE CANCER
     Route: 058
     Dates: start: 20111222, end: 20111222
  3. ANTIANDROGENS [Concomitant]
     Indication: PROSTATE CANCER
     Dates: start: 20111222
  4. ANTIANDROGENS [Concomitant]
     Indication: PROPHYLAXIS
     Dates: start: 20120604, end: 20121204
  5. ANTIANDROGENS [Concomitant]
     Indication: ANTIANDROGEN THERAPY
     Dates: start: 20130312
  6. CALCIUM CHANNEL BLOCKERS [Concomitant]
     Indication: PRODUCT USED FOR UNKNOWN INDICATION
  7. HMG COA REDUCTASE INHIBITORS [Concomitant]
     Indication: PRODUCT USED FOR UNKNOWN INDICATION
  8. ANTINEOPLASTIC AGENTS [Concomitant]
     Indication: PROSTATE CANCER
     Dates: start: 20111222
  9. ANTINEOPLASTIC AGENTS [Concomitant]
     Dates: start: 20120604, end: 20121204
  10. ANTINEOPLASTIC AGENTS [Concomitant]
     Dates: start: 20130312
  11. VITAMIN K ANTAGONISTS [Concomitant]
     Indication: PRODUCT USED FOR UNKNOWN INDICATION

REACTIONS (9)
  - Glycosylated haemoglobin increased [Recovered/Resolved]
  - Prostate cancer [Unknown]
  - Haemoglobin decreased [Recovering/Resolving]
  - Cardiac failure [Unknown]
  - Gamma-glutamyltransferase increased [Unknown]
  - Alanine aminotransferase increased [Unknown]
  - Aspartate aminotransferase increased [Unknown]
  - Blood lactate dehydrogenase increased [Unknown]
  - Blood alkaline phosphatase increased [Unknown]
